FAERS Safety Report 26070649 (Version 1)
Quarter: 2025Q4

REPORT INFORMATION
  Report Type: Spontaneous
  Country: EU (occurrence: EU)
  Receive Date: 20251120
  Receipt Date: 20251120
  Transmission Date: 20260117
  Serious: Yes (Hospitalization, Other)
  Sender: MYLAN
  Company Number: None

PATIENT
  Age: 40 Year
  Sex: Male

DRUGS (16)
  1. BUPRENORPHINE [Suspect]
     Active Substance: BUPRENORPHINE
     Indication: Product used for unknown indication
     Dosage: 6 MILLIGRAM, QD (6 MG/DAY)
     Dates: start: 2014
  2. BUPRENORPHINE [Suspect]
     Active Substance: BUPRENORPHINE
     Dosage: 6 MILLIGRAM, QD (6 MG/DAY)
     Route: 060
     Dates: start: 2014
  3. BUPRENORPHINE [Suspect]
     Active Substance: BUPRENORPHINE
     Dosage: 6 MILLIGRAM, QD (6 MG/DAY)
     Route: 060
     Dates: start: 2014
  4. BUPRENORPHINE [Suspect]
     Active Substance: BUPRENORPHINE
     Dosage: 6 MILLIGRAM, QD (6 MG/DAY)
     Dates: start: 2014
  5. HEROIN [Suspect]
     Active Substance: DIAMORPHINE
     Indication: Product used for unknown indication
     Dosage: 3 GRAM, QW ( 3 G/WEEK)
     Dates: start: 2007
  6. HEROIN [Suspect]
     Active Substance: DIAMORPHINE
     Dosage: 3 GRAM, QW ( 3 G/WEEK)
     Route: 042
     Dates: start: 2007
  7. HEROIN [Suspect]
     Active Substance: DIAMORPHINE
     Dosage: 3 GRAM, QW ( 3 G/WEEK)
     Route: 042
     Dates: start: 2007
  8. HEROIN [Suspect]
     Active Substance: DIAMORPHINE
     Dosage: 3 GRAM, QW ( 3 G/WEEK)
     Dates: start: 2007
  9. COCAINE [Suspect]
     Active Substance: COCAINE
     Indication: Product used for unknown indication
     Dosage: UNK
  10. COCAINE [Suspect]
     Active Substance: COCAINE
     Dosage: UNK
     Route: 055
  11. COCAINE [Suspect]
     Active Substance: COCAINE
     Dosage: UNK
     Route: 055
  12. COCAINE [Suspect]
     Active Substance: COCAINE
     Dosage: UNK
  13. ALCOHOL [Suspect]
     Active Substance: ALCOHOL
     Indication: Product used for unknown indication
     Dosage: UNK UNK, QD (50 CL - 1 L OF 5% BEER/DAY)
     Dates: start: 1999
  14. ALCOHOL [Suspect]
     Active Substance: ALCOHOL
     Dosage: UNK UNK, QD (50 CL - 1 L OF 5% BEER/DAY)
     Route: 048
     Dates: start: 1999
  15. ALCOHOL [Suspect]
     Active Substance: ALCOHOL
     Dosage: UNK UNK, QD (50 CL - 1 L OF 5% BEER/DAY)
     Route: 048
     Dates: start: 1999
  16. ALCOHOL [Suspect]
     Active Substance: ALCOHOL
     Dosage: UNK UNK, QD (50 CL - 1 L OF 5% BEER/DAY)
     Dates: start: 1999

REACTIONS (2)
  - Arthritis bacterial [Recovering/Resolving]
  - Substance use disorder [Not Recovered/Not Resolved]
